FAERS Safety Report 4543962-4 (Version None)
Quarter: 2005Q1

REPORT INFORMATION
  Report Type: 
  Country: None (occurrence: None)
  Receive Date: 20050103
  Receipt Date: 20040229
  Transmission Date: 20050727
  Serious: Yes (Life-Threatening, Hospitalization, Congenital Anomaly)
  Sender: FDA-Public Use
  Company Number: GXKR2004NL00561

PATIENT
  Sex: Male

DRUGS (2)
  1. PAROXETINE (NGX)(PAROXETINE) UNKNOWN [Suspect]
     Dosage: TRANSPLACENTAL
     Route: 064
  2. PHYTONADIONE [Concomitant]

REACTIONS (15)
  - CEREBRAL ATROPHY CONGENITAL [None]
  - CEREBRAL VENTRICLE DILATATION [None]
  - CONGENITAL NEUROLOGICAL DISORDER [None]
  - DRUG EXPOSURE DURING PREGNANCY [None]
  - EPILEPSY CONGENITAL [None]
  - EYE MOVEMENT DISORDER [None]
  - FONTANELLE BULGING [None]
  - HYPOTONIA NEONATAL [None]
  - INTRAVENTRICULAR HAEMORRHAGE NEONATAL [None]
  - LETHARGY [None]
  - NEONATAL APNOEIC ATTACK [None]
  - NEONATAL DISORDER [None]
  - SERUM SEROTONIN DECREASED [None]
  - STEREOTYPIC MOVEMENT DISORDER [None]
  - VISUAL EVOKED POTENTIALS ABNORMAL [None]
